FAERS Safety Report 6171293-8 (Version None)
Quarter: 2009Q2

REPORT INFORMATION
  Report Type: 
  Country: None (occurrence: None)
  Receive Date: 20090429
  Receipt Date: 20090421
  Transmission Date: 20091009
  Serious: Yes (Hospitalization)
  Sender: FDA-Public Use
  Company Number: ES-ASTRAZENECA-2009AC01116

PATIENT
  Age: 7 Year
  Sex: Male

DRUGS (8)
  1. PROPOFOL [Suspect]
     Indication: GENERAL ANAESTHESIA
  2. PROPOFOL [Suspect]
  3. ATROPINE [Concomitant]
     Indication: GENERAL ANAESTHESIA
  4. FENTANYL [Concomitant]
     Indication: GENERAL ANAESTHESIA
  5. VECURONIUM BROMIDE [Concomitant]
     Indication: GENERAL ANAESTHESIA
  6. ONDANSETRON [Concomitant]
     Indication: GENERAL ANAESTHESIA
  7. PROSTIGMIN BROMIDE [Concomitant]
     Indication: GENERAL ANAESTHESIA
  8. VALPROIC ACID [Concomitant]

REACTIONS (1)
  - PRIAPISM [None]
